FAERS Safety Report 9338153 (Version 1)
Quarter: 2013Q2

REPORT INFORMATION
  Report Type: Spontaneous
  Country: US (occurrence: None)
  Receive Date: 20130605
  Receipt Date: 20130605
  Transmission Date: 20140414
  Serious: Yes (Other)
  Sender: FDA-Public Use
  Company Number: None

PATIENT
  Age: 43 Year
  Sex: Male
  Weight: 90 kg

DRUGS (3)
  1. GILENYA [Suspect]
     Indication: MULTIPLE SCLEROSIS
     Route: 048
     Dates: start: 20121217, end: 20130515
  2. LEVEMIR [Concomitant]
  3. NOVOLOG INSULIN PEN [Concomitant]

REACTIONS (2)
  - Eye naevus [None]
  - Choroid melanoma [None]
